FAERS Safety Report 6697803-X (Version None)
Quarter: 2010Q2

REPORT INFORMATION
  Report Type: 
  Country: None (occurrence: None)
  Receive Date: 20100423
  Receipt Date: 20100412
  Transmission Date: 20101027
  Serious: Yes (Hospitalization, Other)
  Sender: FDA-Public Use
  Company Number: 230006M05ESP

PATIENT
  Age: 40 Year
  Sex: Female
  Weight: 50 kg

DRUGS (3)
  1. REBIF [Suspect]
     Indication: MULTIPLE SCLEROSIS
     Dosage: 22, 3 IN 1 WK, SUBCUTANEOUS ; 44, 3 IN 1 WK, SUBCUTANEOUS ; 22, 3 IN 1 WK, SUBCUTANEOUS
     Route: 058
     Dates: start: 20040213, end: 20050509
  2. REBIF [Suspect]
     Indication: MULTIPLE SCLEROSIS
     Dosage: 22, 3 IN 1 WK, SUBCUTANEOUS ; 44, 3 IN 1 WK, SUBCUTANEOUS ; 22, 3 IN 1 WK, SUBCUTANEOUS
     Route: 058
     Dates: start: 20050529
  3. MODAFINIL [Concomitant]

REACTIONS (3)
  - AUTOIMMUNE MYOCARDITIS [None]
  - CARDIOTOXICITY [None]
  - VIRAL MYOCARDITIS [None]
